FAERS Safety Report 15540684 (Version 4)
Quarter: 2018Q4

REPORT INFORMATION
  Report Type: Report from Study
  Country: AU (occurrence: AU)
  Receive Date: 20181023
  Receipt Date: 20181115
  Transmission Date: 20190205
  Serious: No
  Sender: FDA-Public Use
  Company Number: AU-IPSEN BIOPHARMACEUTICALS, INC.-2018-16158

PATIENT
  Age: 52 Year
  Sex: Male

DRUGS (1)
  1. SOMATULINE AUTOGEL 120MG [Suspect]
     Active Substance: LANREOTIDE ACETATE
     Indication: GASTROENTEROPANCREATIC NEUROENDOCRINE TUMOUR DISEASE
     Route: 058

REACTIONS (7)
  - Asthenia [Unknown]
  - Aggression [Unknown]
  - Nausea [Unknown]
  - Amnesia [Unknown]
  - Diarrhoea [Unknown]
  - Pain [Unknown]
  - Delirium [Unknown]

NARRATIVE: CASE EVENT DATE: 20180823
